FAERS Safety Report 11970300 (Version 1)
Quarter: 2016Q1

REPORT INFORMATION
  Report Type: Report from Study
  Country: US (occurrence: US)
  Receive Date: 20160128
  Receipt Date: 20160128
  Transmission Date: 20160526
  Serious: Yes (Hospitalization)
  Sender: FDA-Public Use
  Company Number: US-ABBVIE-15K-163-1388309-00

PATIENT
  Age: 62 Year
  Sex: Female

DRUGS (3)
  1. HUMIRA [Suspect]
     Active Substance: ADALIMUMAB
     Route: 065
     Dates: start: 20150301, end: 20150320
  2. HUMIRA [Suspect]
     Active Substance: ADALIMUMAB
     Indication: CROHN^S DISEASE
     Route: 065
     Dates: start: 2006, end: 2012
  3. HUMIRA [Suspect]
     Active Substance: ADALIMUMAB
     Route: 065
     Dates: start: 20150412

REACTIONS (5)
  - Gastrointestinal surgery [Recovered/Resolved with Sequelae]
  - Gastrointestinal surgery [Recovered/Resolved with Sequelae]
  - Weight decreased [Unknown]
  - Thrombosis [Recovered/Resolved with Sequelae]
  - Impaired healing [Recovering/Resolving]

NARRATIVE: CASE EVENT DATE: 2015
